FAERS Safety Report 10388787 (Version 1)
Quarter: 2014Q1

REPORT INFORMATION
  Report Type: Report from Study
  Country: US (occurrence: None)
  Receive Date: 20140306
  Receipt Date: 20140306
  Transmission Date: 20141002
  Serious: Yes (Hospitalization)
  Sender: FDA-Public Use
  Company Number: 163-21880-13123473

PATIENT
  Age: 58 Year
  Sex: Female
  Weight: 72 kg

DRUGS (17)
  1. REVLIMID (LENALIDOMIDE) (CAPSULES) [Suspect]
     Indication: PLASMA CELL MYELOMA
     Route: 048
     Dates: start: 201201, end: 201203
  2. MLN9708/PLACEBO [Suspect]
     Indication: PLASMA CELL MYELOMA
     Dosage: 4MG, 3 IN 28 D, PO
     Route: 048
     Dates: start: 20130429
  3. DEXAMETHASONE (DEXAMETHASONE) [Suspect]
     Indication: PLASMA CELL MYELOMA
     Route: 048
     Dates: start: 201201, end: 201203
  4. FENTANYL (POULTICE FOR PATCH) [Concomitant]
  5. LASIX (FUROSEMIDE) [Concomitant]
  6. GABAPENTIN [Concomitant]
  7. COUMADIN (WARFARIN SODIUM) [Concomitant]
  8. VITAMIN K (PHYTOMENADIONE) [Concomitant]
  9. ADVAIR DISKUS [Concomitant]
  10. VITAMIN B [Concomitant]
  11. CALCITONIN [Concomitant]
  12. CELEXA (CITALOPRAM HYDROBROMIDE) [Concomitant]
  13. MAGNESIUM PLUS PROTEIN (MAGNESIUM COMPOUNDS) [Concomitant]
  14. OS-CAL [Concomitant]
  15. PREVIDENT (SODIUM FLUORIDE) [Concomitant]
  16. SIMVASTATIN [Concomitant]
  17. KLOR-CON (POTASSIUM CHLORIDE) [Concomitant]

REACTIONS (1)
  - Renal failure acute [None]
